FAERS Safety Report 4821832-1 (Version None)
Quarter: 2005Q4

REPORT INFORMATION
  Report Type: 
  Country: None (occurrence: None)
  Receive Date: 20051107
  Receipt Date: 20051031
  Transmission Date: 20060501
  Serious: Yes (Other)
  Sender: FDA-Public Use
  Company Number: PHBS2005NZ15939

PATIENT
  Sex: Male

DRUGS (4)
  1. LAMISIL [Suspect]
     Indication: SKIN DISORDER
     Dosage: UNK, UNK
     Route: 048
  2. LOSEC [Concomitant]
  3. LIPEX [Concomitant]
  4. BEZALIP [Concomitant]

REACTIONS (3)
  - BLOOD URIC ACID INCREASED [None]
  - BLOOD URINE PRESENT [None]
  - CALCULUS URINARY [None]
